FAERS Safety Report 20461401 (Version 1)
Quarter: 2022Q1

REPORT INFORMATION
  Report Type: Spontaneous
  Country: US (occurrence: US)
  Receive Date: 20220211
  Receipt Date: 20220211
  Transmission Date: 20220423
  Serious: No
  Sender: FDA-Public Use
  Company Number: US-GLENMARK PHARMACEUTICALS-2021GMK066801

PATIENT

DRUGS (2)
  1. IMIQUIMOD [Suspect]
     Active Substance: IMIQUIMOD
     Indication: Skin cancer
     Dosage: UNK UNK, HS (ONCE A DAY MONDAY TO FRIDAY BEFORE BEDTIME WEEKENDS OFF)
     Route: 061
     Dates: start: 201707
  2. IMIQUIMOD [Suspect]
     Active Substance: IMIQUIMOD
     Indication: Basal cell carcinoma

REACTIONS (6)
  - Drug effective for unapproved indication [Unknown]
  - Product use issue [Unknown]
  - Inappropriate schedule of product administration [Unknown]
  - Product storage error [Unknown]
  - Pruritus [Unknown]
  - Erythema [Unknown]

NARRATIVE: CASE EVENT DATE: 20170701
